FAERS Safety Report 18220669 (Version 1)
Quarter: 2020Q3

REPORT INFORMATION
  Report Type: Other
  Country: GB (occurrence: GB)
  Receive Date: 20200902
  Receipt Date: 20200902
  Transmission Date: 20201103
  Serious: Yes (Other)
  Sender: FDA-Public Use
  Company Number: GB-SQUARE-000001

PATIENT
  Age: 63 Year
  Sex: Male

DRUGS (1)
  1. ACYCLOVIR. [Suspect]
     Active Substance: ACYCLOVIR
     Indication: PRODUCT USED FOR UNKNOWN INDICATION
     Dosage: 13 MG/KG, TID, INTRAVENOUSLY.
     Route: 042

REACTIONS (1)
  - Acute kidney injury [Recovering/Resolving]
